FAERS Safety Report 12634829 (Version 1)
Quarter: 2016Q3

REPORT INFORMATION
  Report Type: Spontaneous
  Country: US (occurrence: US)
  Receive Date: 20160808
  Receipt Date: 20160808
  Transmission Date: 20161109
  Serious: No
  Sender: FDA-Public Use
  Company Number: US-NATCO PHARMA LIMITED-1055978

PATIENT
  Sex: Female

DRUGS (1)
  1. LANSOPRAZOLE DELAYED RELEASE CAPSULES, 15 MG AND 30 MG [Suspect]
     Active Substance: LANSOPRAZOLE
     Route: 048
     Dates: start: 20160520

REACTIONS (1)
  - Pharyngeal oedema [Recovered/Resolved]
